FAERS Safety Report 19625905 (Version 1)
Quarter: 2021Q3

REPORT INFORMATION
  Report Type: Spontaneous
  Country: US (occurrence: US)
  Receive Date: 20210728
  Receipt Date: 20210728
  Transmission Date: 20211014
  Serious: Yes (Other)
  Sender: FDA-Public Use
  Company Number: US-BAYER-2021-180338

PATIENT
  Age: 30 Year
  Sex: Female

DRUGS (1)
  1. SKYLA [Suspect]
     Active Substance: LEVONORGESTREL
     Indication: CONTRACEPTION
     Dosage: 14 ?G, CONT
     Route: 015
     Dates: start: 20210414, end: 20210720

REACTIONS (3)
  - Fallopian tube perforation [Recovered/Resolved with Sequelae]
  - Scar [Not Recovered/Not Resolved]
  - Fallopian tube adhesion [Recovered/Resolved with Sequelae]

NARRATIVE: CASE EVENT DATE: 20210630
